FAERS Safety Report 9843873 (Version 1)
Quarter: 2013Q4

REPORT INFORMATION
  Report Type: Spontaneous
  Country: US (occurrence: None)
  Receive Date: 20131223
  Receipt Date: 20131223
  Transmission Date: 20140711
  Serious: Yes (Other)
  Sender: FDA-Public Use
  Company Number: 1000048390

PATIENT
  Age: 50 Year
  Sex: Male

DRUGS (5)
  1. LINZESS (LINACLOTIDE) (290 MICROGRAM, CAPSULES) [Suspect]
     Indication: CONSTIPATION
     Route: 048
     Dates: start: 201308
  2. SUBOXONE (TEMGESIC-NX) (TEMGESIC-NX) [Concomitant]
  3. LISINOPRIL (LISINOPRIL) (LISINOPRIL) [Concomitant]
  4. METOPROLOL (METOPROLOL) (METOPROLOL) [Concomitant]
  5. TESTOSTERONE (TESTOSTERONE) (GEL) (TESTOSTERONE) [Concomitant]

REACTIONS (3)
  - Abdominal discomfort [None]
  - Diarrhoea [None]
  - Off label use [None]
